FAERS Safety Report 23160339 (Version 1)
Quarter: 2023Q4

REPORT INFORMATION
  Report Type: Report from Study
  Country: PT (occurrence: PT)
  Receive Date: 20231108
  Receipt Date: 20231108
  Transmission Date: 20240110
  Serious: Yes (Hospitalization, Other)
  Sender: FDA-Public Use
  Company Number: PT-SOCIETAL CDMO GAINESVILLE, LLC-SOC-2023-000038

PATIENT
  Age: 31 Year
  Sex: Male

DRUGS (2)
  1. VERAPAMIL HYDROCHLORIDE [Suspect]
     Active Substance: VERAPAMIL HYDROCHLORIDE
     Indication: Tachycardia
     Dosage: 2.5 MILLIGRAM, ONE TIME DOSE
     Route: 042
  2. ADENOSINE [Concomitant]
     Active Substance: ADENOSINE
     Indication: Tachycardia
     Dosage: 6+12+12 MILLIGRAMS, UNK
     Route: 042

REACTIONS (1)
  - Ventricular fibrillation [Recovered/Resolved]
